FAERS Safety Report 6607203-6 (Version None)
Quarter: 2010Q1

REPORT INFORMATION
  Report Type: 
  Country: None (occurrence: None)
  Receive Date: 20100227
  Receipt Date: 20100215
  Transmission Date: 20100710
  Serious: Yes (Death)
  Sender: FDA-Public Use
  Company Number: US-JNJFOC-20100209020

PATIENT
  Sex: Male
  Weight: 107.05 kg

DRUGS (9)
  1. FENTANYL-100 [Suspect]
     Indication: DRUG USE FOR UNKNOWN INDICATION
     Route: 062
  2. ACETAMINOPHEN [Concomitant]
     Route: 065
  3. HYDROCODONE [Concomitant]
     Route: 065
  4. ALPRAZOLAM [Concomitant]
     Route: 065
  5. GABAPENTIN [Concomitant]
     Route: 065
  6. VENLAFAXINE [Concomitant]
     Route: 065
  7. BUPROPION HCL [Concomitant]
     Route: 065
  8. TRAMADOL HCL [Concomitant]
     Route: 065
  9. CAFFEINE CITRATE [Concomitant]
     Route: 065

REACTIONS (2)
  - NARCOTIC INTOXICATION [None]
  - WRONG TECHNIQUE IN DRUG USAGE PROCESS [None]
